FAERS Safety Report 7523485-0 (Version None)
Quarter: 2011Q2

REPORT INFORMATION
  Report Type: 
  Country: None (occurrence: None)
  Receive Date: 20110603
  Receipt Date: 20100116
  Transmission Date: 20111010
  Serious: Yes (Death, Hospitalization, Other)
  Sender: FDA-Public Use
  Company Number: US-BAYER-201011562NA

PATIENT
  Age: 63 Year
  Sex: Male
  Weight: 99 kg

DRUGS (38)
  1. TRASYLOL [Suspect]
     Dosage: 75CC OVER ONE HOUR
     Route: 042
     Dates: start: 20070727, end: 20070727
  2. RIFAXIMIN [Concomitant]
  3. ROCEPHIN [Concomitant]
     Dosage: UNK
     Route: 042
     Dates: start: 20070512, end: 20070516
  4. PREDNISONE [Concomitant]
     Dosage: 10 MG, QD
     Route: 048
  5. DIOVAN [Concomitant]
     Dosage: 80 MG, QD
     Route: 048
  6. METOLAZONE [Concomitant]
     Route: 048
  7. TORSEMIDE [Concomitant]
     Dosage: 20 MG, UNK
     Route: 048
  8. DOPAMINE HCL [Concomitant]
  9. TRASYLOL [Suspect]
     Dosage: 50CC TIMES ONE HOUR
     Route: 042
     Dates: start: 20070727, end: 20070727
  10. SPIRONOLACTONE [Concomitant]
  11. TOPROL-XL [Concomitant]
     Dosage: 75 MG, QD
     Route: 048
  12. HEPARIN [Concomitant]
     Dosage: 35000 U, UNK
     Route: 042
     Dates: start: 20070727, end: 20070727
  13. ETOMIDATE [Concomitant]
     Dosage: 20 MG, UNK
     Route: 042
     Dates: start: 20070727, end: 20070727
  14. TRASYLOL [Suspect]
     Indication: CORONARY ARTERY BYPASS
     Dosage: 1 ML
     Route: 042
     Dates: start: 20070727, end: 20070727
  15. LASIX [Concomitant]
     Dosage: 40-80 MG
     Route: 048
  16. XIFAXAN [Concomitant]
     Dosage: 400 MG, TID
     Route: 048
  17. SUFENTA PRESERVATIVE FREE [Concomitant]
     Dosage: 1000 MG, UNK
     Route: 042
     Dates: start: 20070727, end: 20070727
  18. SEVOFLURANE [Concomitant]
     Dosage: UNK
     Dates: start: 20070727, end: 20070727
  19. ANCEF [Concomitant]
     Dosage: 1G
     Route: 042
  20. XYLOCAINE [Concomitant]
     Dosage: 50 MG, UNK
     Route: 042
     Dates: start: 20070727, end: 20070727
  21. PROTAMINE SULFATE [Concomitant]
     Dosage: 450 MG, UNK
     Route: 042
     Dates: start: 20070727, end: 20070727
  22. TRASYLOL [Suspect]
     Indication: AORTIC VALVE REPLACEMENT
     Dosage: 25ML
     Route: 042
     Dates: start: 20070727, end: 20070727
  23. CUBICIN [Concomitant]
     Dosage: 550 MG, QD
     Route: 042
     Dates: start: 20070524
  24. ZITHROMAX [Concomitant]
     Dosage: UNK
     Route: 042
     Dates: start: 20070512, end: 20070516
  25. ANECTINE [Concomitant]
     Dosage: 120 MG, UNK
     Route: 042
     Dates: start: 20070727, end: 20070727
  26. SOLU-MEDROL [Concomitant]
     Dosage: 1 G, UNK
     Route: 042
     Dates: start: 20070727, end: 20070727
  27. FENTANYL [Concomitant]
     Dosage: 250 MG, UNK
     Route: 042
     Dates: start: 20070727, end: 20070727
  28. SCOPOLAMINE [Concomitant]
     Dosage: 0.4 MG, UNK
     Route: 042
     Dates: start: 20070727, end: 20070727
  29. HEPARIN [Concomitant]
     Dosage: 10000 UNITS
     Route: 042
  30. ZEMURON [Concomitant]
     Dosage: 14 MG, UNK
     Route: 042
     Dates: start: 20070727, end: 20070727
  31. RED BLOOD CELLS [Concomitant]
     Route: 042
  32. AMIODARONE HCL [Concomitant]
     Route: 048
  33. LASIX [Concomitant]
     Dosage: 80 MG
     Route: 042
  34. VERSED [Concomitant]
     Dosage: 15 MG, UNK
     Route: 042
     Dates: start: 20070727, end: 20070727
  35. PANCURONIUM BROMIDE [Concomitant]
     Dosage: 20 MG, UNK
     Route: 042
  36. AMICAR [Concomitant]
     Dosage: 10 G, UNK
     Route: 042
     Dates: start: 20070727, end: 20070727
  37. FRESH FROZEN PLASMA [Concomitant]
     Dosage: 258ML
     Route: 042
  38. PLATELETS [Concomitant]
     Route: 042

REACTIONS (14)
  - RENAL IMPAIRMENT [None]
  - UNEVALUABLE EVENT [None]
  - ANHEDONIA [None]
  - INJURY [None]
  - FEAR [None]
  - RENAL FAILURE [None]
  - ANXIETY [None]
  - PAIN [None]
  - DEPRESSION [None]
  - CEREBROVASCULAR ACCIDENT [None]
  - RENAL INJURY [None]
  - CARDIAC DISORDER [None]
  - DEATH [None]
  - MULTI-ORGAN FAILURE [None]
